FAERS Safety Report 13445021 (Version 2)
Quarter: 2017Q2

REPORT INFORMATION
  Report Type: Spontaneous
  Country: JP (occurrence: JP)
  Receive Date: 20170414
  Receipt Date: 20170524
  Transmission Date: 20170830
  Serious: Yes (Hospitalization, Disabling)
  Sender: FDA-Public Use
  Company Number: JP-ASTRAZENECA-2017SE38351

PATIENT
  Age: 87 Year
  Sex: Male
  Weight: 39 kg

DRUGS (10)
  1. CASODEX [Suspect]
     Active Substance: BICALUTAMIDE
     Indication: PROSTATE CANCER
     Route: 048
     Dates: end: 20170303
  2. WARFARIN POTASSIUM [Interacting]
     Active Substance: WARFARIN POTASSIUM
     Dosage: 1.75 MG, NUMBER OF SEPARATE DOSAGES UNKNOWN
     Route: 048
     Dates: end: 20170208
  3. WARFARIN POTASSIUM [Interacting]
     Active Substance: WARFARIN POTASSIUM
     Route: 048
     Dates: start: 20170220, end: 20170301
  4. WARFARIN POTASSIUM [Interacting]
     Active Substance: WARFARIN POTASSIUM
     Dosage: 2 MG, NUMBER OF SEPARATE DOSAGES UNKNOWN
     Route: 048
  5. SELTOUCH [Concomitant]
     Active Substance: FELBINAC
     Dosage: DOSE UNKNOWN
     Route: 062
  6. WARFARIN POTASSIUM [Interacting]
     Active Substance: WARFARIN POTASSIUM
     Dosage: 1 MG, DAILY, BEFORE SLEEP
     Route: 048
     Dates: start: 20170209
  7. DIART [Concomitant]
     Active Substance: AZOSEMIDE
     Route: 048
  8. AMLODIN OD [Concomitant]
     Active Substance: AMLODIPINE BESYLATE
     Route: 048
  9. RENIVACE [Concomitant]
     Active Substance: ENALAPRIL
     Dosage: 5 MG, PER HOUR, MORNINGS
     Route: 065
  10. REMINYL [Concomitant]
     Active Substance: GALANTAMINE
     Dosage: 8 MG, TWO TIMES A DAY, MORNINGS AND EVENINGS
     Route: 048

REACTIONS (13)
  - Skin injury [Unknown]
  - Depressive symptom [Unknown]
  - Fall [Unknown]
  - Haemorrhage subcutaneous [Unknown]
  - Subdural haematoma [Unknown]
  - Disuse syndrome [Unknown]
  - Renal impairment [Recovering/Resolving]
  - Pancytopenia [Unknown]
  - Drug interaction [Unknown]
  - Anaemia [Recovered/Resolved]
  - International normalised ratio increased [Recovering/Resolving]
  - Hypernatraemia [Unknown]
  - Body temperature increased [Unknown]

NARRATIVE: CASE EVENT DATE: 20170209
